FAERS Safety Report 9207020 (Version 1)
Quarter: 2013Q2

REPORT INFORMATION
  Report Type: Spontaneous
  Country: DE (occurrence: DE)
  Receive Date: 20130403
  Receipt Date: 20130403
  Transmission Date: 20140414
  Serious: No
  Sender: FDA-Public Use
  Company Number: DE-SANOFI-AVENTIS-2013SA032455

PATIENT
  Age: 72 Year
  Sex: Female

DRUGS (5)
  1. MULTAQ [Suspect]
     Indication: ATRIAL FIBRILLATION
     Route: 048
  2. MULTAQ [Suspect]
     Indication: ATRIAL FLUTTER
     Route: 048
  3. MARCUMAR [Concomitant]
  4. TORASEMIDE [Concomitant]
  5. ALDACTONE [Concomitant]

REACTIONS (1)
  - Blood creatinine increased [Recovered/Resolved]
